FAERS Safety Report 11359440 (Version 1)
Quarter: 2015Q3

REPORT INFORMATION
  Report Type: Spontaneous
  Country: CN (occurrence: CN)
  Receive Date: 20150807
  Receipt Date: 20150807
  Transmission Date: 20151125
  Serious: Yes (Other)
  Sender: FDA-Public Use
  Company Number: CN-AMEDRA PHARMACEUTICALS LLC-2015AMD00158

PATIENT
  Age: 64 Year
  Sex: Male

DRUGS (1)
  1. EPINEPHRINE. [Suspect]
     Active Substance: EPINEPHRINE
     Indication: CARDIAC ARREST
     Dosage: UNK, UNK
     Route: 042

REACTIONS (4)
  - Ventricular hypokinesia [Recovered/Resolved]
  - Haemodynamic instability [Recovered/Resolved]
  - Arteriospasm coronary [Recovered/Resolved]
  - Ejection fraction decreased [Recovered/Resolved]
